FAERS Safety Report 5538456-3 (Version None)
Quarter: 2007Q4

REPORT INFORMATION
  Report Type: 
  Country: None (occurrence: None)
  Receive Date: 20071205
  Receipt Date: 20071120
  Transmission Date: 20080405
  Serious: Yes (Hospitalization, Other)
  Sender: FDA-Public Use
  Company Number: 07GB000969

PATIENT
  Age: 30 Year
  Sex: Male

DRUGS (6)
  1. PAROXETINE [Suspect]
     Indication: DRUG USE FOR UNKNOWN INDICATION
     Dates: start: 19931007, end: 19931116
  2. LITHIUM CARBONATE [Suspect]
     Indication: BIPOLAR I DISORDER
     Dates: start: 19920101
  3. CLOMIPRAMINE HCL [Concomitant]
  4. CODEINE PHOSPHATE AND ACETAMINOPHEN [Concomitant]
  5. PAROXETINE HYDROCHLORIDE [Concomitant]
  6. ALCOHOL [Concomitant]

REACTIONS (11)
  - ALCOHOL POISONING [None]
  - APPETITE DISORDER [None]
  - DISTURBANCE IN ATTENTION [None]
  - DRUG WITHDRAWAL SYNDROME [None]
  - FALL [None]
  - HEADACHE [None]
  - NIGHTMARE [None]
  - OVERDOSE [None]
  - POOR QUALITY SLEEP [None]
  - SUICIDAL IDEATION [None]
  - SUICIDE ATTEMPT [None]
